FAERS Safety Report 8573056-2 (Version None)
Quarter: 2012Q3

REPORT INFORMATION
  Report Type: 
  Country: None (occurrence: None)
  Receive Date: 20120806
  Receipt Date: 20120722
  Transmission Date: 20120928
  Serious: Yes (Death, Other)
  Sender: FDA-Public Use
  Company Number: ES-ROCHE-549995

PATIENT

DRUGS (8)
  1. PREDNISONE TAB [Suspect]
     Indication: LYMPHOMA AIDS RELATED
     Dosage: GIVEN FOR 5 DAYS
     Route: 048
  2. VINCRISTINE SULFATE [Suspect]
     Indication: LYMPHOMA AIDS RELATED
     Dosage: GIVEN ON DAY 1 OF 3 WEEK CYCLE.
     Route: 042
  3. HYDROCORTISONE [Concomitant]
     Dosage: GIVEN WITH EACH CYCLE
  4. DOXORUBICIN HCL [Suspect]
     Indication: LYMPHOMA AIDS RELATED
     Dosage: GIVEN ON DAY 1 OF THE 3 WEEK CYCLE
     Route: 042
  5. CYTARABINE [Concomitant]
     Dosage: GIVEN WITH EACH CYCLE
  6. METHOTREXATE [Concomitant]
     Indication: PROPHYLAXIS
     Dosage: GIVEN WITH EACH CYCLE
  7. CYCLOPHOSPHAMIDE [Suspect]
     Indication: LYMPHOMA AIDS RELATED
     Dosage: GIVEN ON DAY 1 OF THE 3 WEEK CYCLE
     Route: 042
  8. MABTHERA [Suspect]
     Indication: LYMPHOMA AIDS RELATED
     Dosage: GIVEN ON DAY 1 OF EVERY 3 WEEK CYCLE (PRIOR TO CHOP)
     Route: 042

REACTIONS (19)
  - HEPATIC FAILURE [None]
  - AIDS DEMENTIA COMPLEX [None]
  - NEUTROPENIA [None]
  - ENCEPHALITIS [None]
  - MULTI-ORGAN FAILURE [None]
  - CARDIOTOXICITY [None]
  - SUDDEN DEATH [None]
  - ESCHERICHIA INFECTION [None]
  - PSEUDOMONAS INFECTION [None]
  - METASTASIS [None]
  - SKIN TOXICITY [None]
  - INFECTION [None]
  - TOXICITY TO VARIOUS AGENTS [None]
  - STAPHYLOCOCCAL INFECTION [None]
  - DEATH [None]
  - NEUROTOXICITY [None]
  - CYTOMEGALOVIRUS COLITIS [None]
  - PNEUMONIA PNEUMOCOCCAL [None]
  - PNEUMONIA HERPES VIRAL [None]
